FAERS Safety Report 24566560 (Version 1)
Quarter: 2024Q4

REPORT INFORMATION
  Report Type: Spontaneous
  Country: US (occurrence: None)
  Receive Date: 20241030
  Receipt Date: 20241030
  Transmission Date: 20250114
  Serious: Yes (Hospitalization)
  Sender: Public
  Company Number: None

PATIENT
  Sex: Female

DRUGS (3)
  1. AMBRISENTAN [Suspect]
     Active Substance: AMBRISENTAN
     Indication: Pulmonary arterial hypertension
     Dosage: FREQUENCY : DAILY;?
     Route: 048
     Dates: start: 202409
  2. ADEMPAS [Suspect]
     Active Substance: RIOCIGUAT
  3. TADALAFIL [Concomitant]

REACTIONS (6)
  - Neutropenia [None]
  - Nausea [None]
  - Oedema [None]
  - Dyspnoea exertional [None]
  - Cough [None]
  - Decreased appetite [None]
